FAERS Safety Report 21188815 (Version 2)
Quarter: 2022Q3

REPORT INFORMATION
  Report Type: Spontaneous
  Country: US (occurrence: US)
  Receive Date: 20220809
  Receipt Date: 20220819
  Transmission Date: 20221027
  Serious: Yes (Hospitalization, Other)
  Sender: FDA-Public Use
  Company Number: US-AUROBINDO-AUR-APL-2022-030941

PATIENT
  Age: 7 Decade
  Sex: Male

DRUGS (10)
  1. AZITHROMYCIN [Suspect]
     Active Substance: AZITHROMYCIN
     Indication: Respiratory tract infection
     Dosage: UNK
     Route: 065
  2. LEVOFLOXACIN [Suspect]
     Active Substance: LEVOFLOXACIN
     Indication: Cough
     Dosage: 500 MILLIGRAM
     Route: 065
  3. PREDNISONE [Suspect]
     Active Substance: PREDNISONE
     Indication: Cough
     Dosage: UNK, 20?40 MILLIGRAM FOR 2-5 MONTHS
     Route: 048
  4. VANCOMYCIN [Suspect]
     Active Substance: VANCOMYCIN
     Indication: Respiratory tract infection
     Dosage: UNK
     Route: 042
  5. CEFEPIME [Suspect]
     Active Substance: CEFEPIME HYDROCHLORIDE
     Indication: Respiratory tract infection
     Dosage: UNK
     Route: 065
  6. LACTOBACILLUS ACIDOPHILUS [Suspect]
     Active Substance: LACTOBACILLUS ACIDOPHILUS
     Indication: Colitis ulcerative
     Dosage: UNK
     Route: 065
  7. PROBIOTICS NOS [Suspect]
     Active Substance: PROBIOTICS NOS
     Indication: Colitis ulcerative
     Dosage: UNK
     Route: 065
  8. HYDROCORTISONE [Concomitant]
     Active Substance: HYDROCORTISONE
     Indication: Mean arterial pressure decreased
     Dosage: UNK
     Route: 065
  9. LACTATED RINGERS SOLUTION [Concomitant]
     Active Substance: CALCIUM CHLORIDE\POTASSIUM CHLORIDE\SODIUM CHLORIDE\SODIUM LACTATE
     Indication: Respiratory tract infection
     Dosage: UNK
     Route: 065
  10. MIDODRINE [Concomitant]
     Active Substance: MIDODRINE
     Indication: Mean arterial pressure decreased
     Dosage: UNK
     Route: 065

REACTIONS (4)
  - Lactobacillus infection [Recovered/Resolved]
  - Sepsis [Recovered/Resolved]
  - Endocarditis [Recovered/Resolved]
  - Septic embolus [Recovered/Resolved]
